FAERS Safety Report 11743062 (Version 1)
Quarter: 2015Q4

REPORT INFORMATION
  Report Type: Spontaneous
  Country: US (occurrence: US)
  Receive Date: 20151116
  Receipt Date: 20151116
  Transmission Date: 20160304
  Serious: Yes (Other)
  Sender: FDA-Public Use
  Company Number: US-INCYTE CORPORATION-2014IN001871

PATIENT

DRUGS (1)
  1. ASPIRIN. [Suspect]
     Active Substance: ASPIRIN

REACTIONS (1)
  - Pyrexia [Recovered/Resolved]
